FAERS Safety Report 8773805 (Version 1)
Quarter: 2012Q4

REPORT INFORMATION
  Report Type: 
  Country: AU (occurrence: AU)
  Receive Date: 20120907
  Receipt Date: 20120907
  Transmission Date: 20130627
  Serious: Yes (Disabling)
  Sender: FDA-Public Use
  Company Number: AU-ASTRAZENECA-2012SE65620

PATIENT
  Age: 54 Year
  Sex: Male

DRUGS (1)
  1. ATACAND [Suspect]
     Indication: ESSENTIAL HYPERTENSION
     Route: 048
     Dates: start: 20111207, end: 20120215

REACTIONS (2)
  - Penile curvature [Unknown]
  - Sexual dysfunction [Unknown]
